FAERS Safety Report 26207790 (Version 1)
Quarter: 2025Q4

REPORT INFORMATION
  Report Type: Spontaneous
  Country: JP (occurrence: JP)
  Receive Date: 20251229
  Receipt Date: 20251229
  Transmission Date: 20260117
  Serious: Yes (Death, Hospitalization, Other)
  Sender: STRIDES
  Company Number: JP-STRIDES ARCOLAB LIMITED-2025SP016034

PATIENT
  Age: 81 Year
  Sex: Male

DRUGS (15)
  1. VANCOMYCIN [Suspect]
     Active Substance: VANCOMYCIN
     Indication: Haematological infection
     Dosage: UNK
     Route: 065
  2. URSODIOL [Suspect]
     Active Substance: URSODIOL
     Indication: Vanishing bile duct syndrome
     Dosage: 600 MILLIGRAM, QD
     Route: 065
  3. AMPICILLIN TRIHYDRATE [Suspect]
     Active Substance: AMPICILLIN TRIHYDRATE
     Indication: Haematological infection
     Dosage: UNK
     Route: 065
  4. PREDNISOLONE [Suspect]
     Active Substance: PREDNISOLONE
     Indication: Microscopic polyangiitis
     Dosage: 20 MILLIGRAM, QD
     Route: 065
  5. AZTREONAM [Suspect]
     Active Substance: AZTREONAM
     Indication: Bacteraemia
     Dosage: UNK
     Route: 065
  6. METHYLPREDNISOLONE [Suspect]
     Active Substance: METHYLPREDNISOLONE
     Indication: Vanishing bile duct syndrome
     Dosage: 1000 MILLIGRAM, QD
     Route: 065
  7. METHYLPREDNISOLONE [Suspect]
     Active Substance: METHYLPREDNISOLONE
     Dosage: 60 MILLIGRAM, QD
     Route: 065
  8. PIPERACILLIN SODIUM\TAZOBACTAM SODIUM [Suspect]
     Active Substance: PIPERACILLIN SODIUM\TAZOBACTAM SODIUM
     Indication: Bacteraemia
     Dosage: UNK
     Route: 065
  9. GANCICLOVIR [Suspect]
     Active Substance: GANCICLOVIR
     Indication: Cytomegalovirus infection reactivation
     Dosage: UNK
     Route: 065
  10. AVACOPAN [Concomitant]
     Active Substance: AVACOPAN
     Indication: Microscopic polyangiitis
     Dosage: 60 MILLIGRAM, QD
     Route: 065
  11. RITUXIMAB [Concomitant]
     Active Substance: RITUXIMAB
     Indication: Microscopic polyangiitis
     Dosage: 375 MILLIGRAM/SQ. METER RECEIVED 4 CYCLES
     Route: 065
  12. COTRIMOXAZOLE [Concomitant]
     Active Substance: SULFAMETHOXAZOLE\TRIMETHOPRIM
     Indication: Prophylaxis
     Dosage: 200/40MG
     Route: 065
  13. COTRIMOXAZOLE [Concomitant]
     Active Substance: SULFAMETHOXAZOLE\TRIMETHOPRIM
     Indication: Pneumocystis jirovecii pneumonia
  14. VONOPRAZAN [Concomitant]
     Active Substance: VONOPRAZAN
     Indication: Prophylaxis
     Dosage: 20 MILLIGRAM, QD
     Route: 065
  15. VONOPRAZAN [Concomitant]
     Active Substance: VONOPRAZAN
     Indication: Peptic ulcer

REACTIONS (7)
  - Septic shock [Fatal]
  - Drug ineffective for unapproved indication [Fatal]
  - Liver injury [Unknown]
  - Cholestasis [Unknown]
  - Portal fibrosis [Unknown]
  - Drug ineffective [Unknown]
  - Off label use [Unknown]
